FAERS Safety Report 9841023 (Version 3)
Quarter: 2014Q1

REPORT INFORMATION
  Report Type: Report from Study
  Country: FR (occurrence: FR)
  Receive Date: 20140124
  Receipt Date: 20140307
  Transmission Date: 20141002
  Serious: Yes (Death, Hospitalization, Other)
  Sender: FDA-Public Use
  Company Number: FR-ASTELLAS-2013EU006197

PATIENT
  Age: 84 Year
  Sex: Male
  Weight: 64 kg

DRUGS (4)
  1. ENZALUTAMIDE [Suspect]
     Indication: PROSTATE CANCER
     Dosage: 160 MG, UID/QD
     Route: 048
     Dates: start: 20130411, end: 20130708
  2. PREDNISONE [Concomitant]
     Indication: PROSTATE CANCER
     Dosage: 10 MG, UID/QD
     Route: 048
     Dates: start: 201103
  3. ZOLADEX                            /00732101/ [Concomitant]
     Indication: PROSTATE CANCER
     Dosage: 10.8 MG, MONTHLY
     Route: 058
     Dates: start: 2003
  4. KARDEGIC [Concomitant]
     Indication: PROSTATE CANCER
     Dosage: 75 MG, UID/QD
     Route: 048
     Dates: start: 2003

REACTIONS (8)
  - Malignant neoplasm progression [Fatal]
  - Asthenia [Fatal]
  - Femoral neck fracture [Unknown]
  - Rib fracture [Unknown]
  - Confusional state [Unknown]
  - Lung infection [Not Recovered/Not Resolved]
  - Fall [Not Recovered/Not Resolved]
  - General physical health deterioration [Unknown]
